FAERS Safety Report 9663852 (Version 1)
Quarter: 2013Q4

REPORT INFORMATION
  Report Type: Spontaneous
  Country: CO (occurrence: CO)
  Receive Date: 20131101
  Receipt Date: 20131101
  Transmission Date: 20140711
  Serious: Yes (Death)
  Sender: FDA-Public Use
  Company Number: CO-UCBSA-101836

PATIENT
  Age: 88 Year
  Sex: Female

DRUGS (4)
  1. NEUPRO [Suspect]
     Indication: PARKINSON^S DISEASE
     Route: 062
     Dates: start: 20130927, end: 20131019
  2. SINEMET [Concomitant]
     Dosage: 4 TABLETS/DAY
     Dates: start: 2006
  3. TRAMAL [Concomitant]
     Dosage: 4 TABLET/DAY, SINCE 10 MONTHS
  4. METOCARBAMOL [Concomitant]
     Dosage: 1 TABLET/DAY

REACTIONS (2)
  - Death [Fatal]
  - Eating disorder [Unknown]
